FAERS Safety Report 7031216-6 (Version None)
Quarter: 2010Q4

REPORT INFORMATION
  Report Type: 
  Country: None (occurrence: None)
  Receive Date: 20101006
  Receipt Date: 20101001
  Transmission Date: 20110411
  Serious: Yes (Death)
  Sender: FDA-Public Use
  Company Number: A0835963A

PATIENT
  Age: 64 Year
  Sex: Male
  Weight: 111.4 kg

DRUGS (8)
  1. AVANDIA [Suspect]
     Dosage: 2MG PER DAY
     Route: 048
     Dates: start: 20050501, end: 20070312
  2. AVANDAMET [Suspect]
     Route: 048
     Dates: start: 20060101, end: 20060101
  3. ALLOPURINOL [Concomitant]
  4. CRESTOR [Concomitant]
  5. MAXZIDE [Concomitant]
  6. METFORMIN [Concomitant]
  7. TOPROL-XL [Concomitant]
  8. NASACORT [Concomitant]

REACTIONS (4)
  - CARDIO-RESPIRATORY ARREST [None]
  - CORONARY ARTERY DISEASE [None]
  - MYOCARDIAL INFARCTION [None]
  - VENTRICULAR FIBRILLATION [None]
